FAERS Safety Report 10712673 (Version 1)
Quarter: 2015Q1

REPORT INFORMATION
  Report Type: Spontaneous
  Country: US (occurrence: None)
  Receive Date: 20150114
  Receipt Date: 20150114
  Transmission Date: 20150721
  Serious: Yes (Other)
  Sender: FDA-Public Use
  Company Number: None

PATIENT
  Age: 84 Year
  Sex: Male
  Weight: 97.2 kg

DRUGS (1)
  1. KCENTRA [Suspect]
     Active Substance: COAGULATION FACTOR IX HUMAN\COAGULATION FACTOR VII HUMAN\COAGULATION FACTOR X HUMAN\PROTEIN C\PROTEIN S HUMAN\PROTHROMBIN
     Indication: INTERNATIONAL NORMALISED RATIO ABNORMAL
     Dosage: 2308 UNITS
     Route: 042
     Dates: start: 20150112, end: 20150112

REACTIONS (3)
  - International normalised ratio abnormal [None]
  - Therapeutic response unexpected [None]
  - Product quality issue [None]

NARRATIVE: CASE EVENT DATE: 20150112
